FAERS Safety Report 10017277 (Version 1)
Quarter: 2014Q1

REPORT INFORMATION
  Report Type: Spontaneous
  Country: US (occurrence: None)
  Receive Date: 20140313
  Receipt Date: 20140313
  Transmission Date: 20141002
  Serious: Yes (Other)
  Sender: FDA-Public Use
  Company Number: None

PATIENT
  Age: 70 Year
  Sex: Female
  Weight: 68.49 kg

DRUGS (1)
  1. PRISTIQ [Suspect]
     Indication: DEPRESSION
     Dosage: 1  A DAY
     Route: 048

REACTIONS (5)
  - Hyperhidrosis [None]
  - Blood pressure increased [None]
  - Vision blurred [None]
  - Drug withdrawal syndrome [None]
  - Abnormal dreams [None]
